FAERS Safety Report 5466198-1 (Version None)
Quarter: 2007Q3

REPORT INFORMATION
  Report Type: 
  Country: None (occurrence: None)
  Receive Date: 20070924
  Receipt Date: 20070912
  Transmission Date: 20080115
  Serious: Yes (Other)
  Sender: FDA-Public Use
  Company Number: GB-PFIZER INC-2007076418

PATIENT
  Age: 43 Year
  Sex: Female
  Weight: 92 kg

DRUGS (9)
  1. VARENICLINE TABLETS [Suspect]
     Route: 048
     Dates: start: 20070607, end: 20070618
  2. CETIRIZINE HCL [Concomitant]
  3. CO-CODAMOL [Concomitant]
  4. FYBOGEL [Concomitant]
  5. GAVISCON [Concomitant]
  6. HYOSCINE [Concomitant]
  7. OMEPRAZOLE [Concomitant]
  8. SALBUTAMOL [Concomitant]
  9. SUMATRIPTAN SUCCINATE [Concomitant]

REACTIONS (5)
  - ERUCTATION [None]
  - HYPERTENSION [None]
  - INSOMNIA [None]
  - MOOD ALTERED [None]
  - TACHYCARDIA [None]
